FAERS Safety Report 10381750 (Version 5)
Quarter: 2015Q1

REPORT INFORMATION
  Report Type: Spontaneous
  Country: US (occurrence: US)
  Receive Date: 20140813
  Receipt Date: 20150127
  Transmission Date: 20150720
  Serious: Yes (Hospitalization, Other)
  Sender: FDA-Public Use
  Company Number: US-BAYER-2014-118624

PATIENT
  Age: 25 Year
  Sex: Female
  Weight: 86.17 kg

DRUGS (1)
  1. MIRENA [Suspect]
     Active Substance: LEVONORGESTREL
     Indication: CONTRACEPTION
     Dosage: 20 MCG/24HR, CONT
     Route: 015
     Dates: start: 20081028, end: 20131223

REACTIONS (10)
  - Complication of device removal [None]
  - Device breakage [None]
  - Uterine perforation [None]
  - Device difficult to use [None]
  - Flank pain [None]
  - Pelvic pain [None]
  - Scar [None]
  - Pain [None]
  - Injury [None]
  - Abdominal pain [None]

NARRATIVE: CASE EVENT DATE: 201310
